FAERS Safety Report 6346231-5 (Version None)
Quarter: 2009Q3

REPORT INFORMATION
  Report Type: 
  Country: None (occurrence: None)
  Receive Date: 20090909
  Receipt Date: 20090901
  Transmission Date: 20100115
  Serious: Yes (Other)
  Sender: FDA-Public Use
  Company Number: PHHY2009AU37084

PATIENT
  Sex: Female

DRUGS (3)
  1. EXJADE [Suspect]
     Indication: MYELODYSPLASTIC SYNDROME
  2. PROVERA [Concomitant]
  3. OGEN [Concomitant]

REACTIONS (3)
  - BLISTER [None]
  - PRURITUS [None]
  - SURGERY [None]
